FAERS Safety Report 23366434 (Version 1)
Quarter: 2024Q1

REPORT INFORMATION
  Report Type: Spontaneous
  Country: US (occurrence: None)
  Receive Date: 20240103
  Receipt Date: 20240103
  Transmission Date: 20240410
  Serious: Yes (Hospitalization)
  Sender: FDA-Public Use
  Company Number: None

PATIENT
  Sex: Female

DRUGS (1)
  1. TOBRAMYCIN [Suspect]
     Active Substance: TOBRAMYCIN
     Dosage: OTHER QUANTITY : 300/4 MG/ML;?OTHER FREQUENCY : BID 28D ON 28D OFF;?NEBULIZE 1 AMPULE VIA NEBULIZER
     Route: 055
     Dates: start: 20201017

REACTIONS (2)
  - Hospitalisation [None]
  - Intentional dose omission [None]
